FAERS Safety Report 11538564 (Version 2)
Quarter: 2015Q4

REPORT INFORMATION
  Report Type: Spontaneous
  Country: JP (occurrence: JP)
  Receive Date: 20150922
  Receipt Date: 20151006
  Transmission Date: 20160304
  Serious: Yes (Hospitalization)
  Sender: FDA-Public Use
  Company Number: JP-009507513-1508JPN010837

PATIENT
  Age: 79 Year
  Sex: Male

DRUGS (4)
  1. JANUVIA [Suspect]
     Active Substance: SITAGLIPTIN PHOSPHATE
     Dosage: 50 MG, QD
     Route: 048
     Dates: start: 20110622
  2. ATORVASTATIN CALCIUM. [Concomitant]
     Active Substance: ATORVASTATIN CALCIUM
     Indication: HYPERCHOLESTEROLAEMIA
     Dosage: 5 MG, QD
     Route: 048
  3. EXFORGE [Concomitant]
     Active Substance: AMLODIPINE BESYLATE\VALSARTAN
     Indication: HYPERTENSION
     Dosage: DAILY DOSAGE UNKNOWN; QD
     Route: 048
     Dates: start: 201506
  4. GLIMEPIRIDE. [Concomitant]
     Active Substance: GLIMEPIRIDE
     Indication: TYPE 2 DIABETES MELLITUS
     Dosage: 1 MG, QD
     Route: 048

REACTIONS (1)
  - Seronegative arthritis [Unknown]

NARRATIVE: CASE EVENT DATE: 201508
